FAERS Safety Report 6613443-2 (Version None)
Quarter: 2010Q1

REPORT INFORMATION
  Report Type: 
  Country: None (occurrence: None)
  Receive Date: 20100304
  Receipt Date: 20090807
  Transmission Date: 20100710
  Serious: Yes (Life-Threatening)
  Sender: FDA-Public Use
  Company Number: PHHY2009BR60789

PATIENT
  Age: 54 Year
  Sex: Female

DRUGS (1)
  1. DIOVAN AMLO [Suspect]
     Indication: HYPERTENSION
     Dosage: 1 TABLET (160/5 MG) IN THE MORNING
     Route: 065

REACTIONS (3)
  - BLOOD PRESSURE FLUCTUATION [None]
  - DRUG DOSE OMISSION [None]
  - FEELING ABNORMAL [None]
